FAERS Safety Report 22259345 (Version 1)
Quarter: 2023Q2

REPORT INFORMATION
  Report Type: Spontaneous
  Country: US (occurrence: US)
  Receive Date: 20230427
  Receipt Date: 20230427
  Transmission Date: 20230722
  Serious: No
  Sender: FDA-Public Use
  Company Number: US-TRIS PHARMA, INC.-23US010831

PATIENT

DRUGS (1)
  1. QUILLIVANT XR [Suspect]
     Active Substance: METHYLPHENIDATE HYDROCHLORIDE
     Indication: Product used for unknown indication
     Dosage: 25 MILLILITRE

REACTIONS (8)
  - Dermatillomania [Unknown]
  - Feeding disorder [Unknown]
  - Feeling abnormal [Unknown]
  - Pain in extremity [Unknown]
  - Abdominal pain upper [Unknown]
  - Diarrhoea [Unknown]
  - Insomnia [Unknown]
  - Overdose [Unknown]
